FAERS Safety Report 21164170 (Version 1)
Quarter: 2022Q3

REPORT INFORMATION
  Report Type: Spontaneous
  Country: CN (occurrence: None)
  Receive Date: 20220803
  Receipt Date: 20220803
  Transmission Date: 20221027
  Serious: Yes (Hospitalization)
  Sender: FDA-Public Use
  Company Number: CN-ROCHE-3146874

PATIENT
  Age: 45 Year
  Sex: Female
  Weight: 53 kg

DRUGS (8)
  1. TRASTUZUMAB [Suspect]
     Active Substance: TRASTUZUMAB
     Indication: Breast cancer
     Route: 041
     Dates: start: 20220701, end: 20220701
  2. PERJETA [Suspect]
     Active Substance: PERTUZUMAB
     Indication: Breast cancer
     Route: 041
     Dates: start: 20220701, end: 20220701
  3. CARBOPLATIN [Suspect]
     Active Substance: CARBOPLATIN
     Indication: Breast cancer
     Route: 041
     Dates: start: 20220701, end: 20220701
  4. PACLITAXEL [Suspect]
     Active Substance: PACLITAXEL
     Indication: Breast cancer
     Route: 041
     Dates: start: 20220701, end: 20220701
  5. SODIUM CHLORIDE [Concomitant]
     Active Substance: SODIUM CHLORIDE
     Route: 041
     Dates: start: 20220701, end: 20220701
  6. SODIUM CHLORIDE [Concomitant]
     Active Substance: SODIUM CHLORIDE
     Route: 041
     Dates: start: 20220701, end: 20220701
  7. SODIUM CHLORIDE [Concomitant]
     Active Substance: SODIUM CHLORIDE
     Route: 041
     Dates: start: 20220701, end: 20220701
  8. DEXTROSE [Concomitant]
     Active Substance: DEXTROSE
     Route: 041
     Dates: start: 20220701, end: 20220701

REACTIONS (2)
  - Myelosuppression [Recovering/Resolving]
  - Asthenia [Recovering/Resolving]

NARRATIVE: CASE EVENT DATE: 20220713
